FAERS Safety Report 15213473 (Version 3)
Quarter: 2018Q3

REPORT INFORMATION
  Report Type: Spontaneous
  Country: US (occurrence: US)
  Receive Date: 20180730
  Receipt Date: 20180914
  Transmission Date: 20181010
  Serious: No
  Sender: FDA-Public Use
  Company Number: US-PFIZER INC-2018304676

PATIENT
  Age: 51 Year
  Sex: Female
  Weight: 116 kg

DRUGS (1)
  1. IBRANCE [Suspect]
     Active Substance: PALBOCICLIB
     Indication: BREAST CANCER FEMALE
     Dosage: 125 MG, CYCLIC (DAILY 1 TO 21 DAYS) (1 CAPSULE/ DAILY 1?21/ DAYS )
     Route: 048
     Dates: start: 20180523, end: 2018

REACTIONS (6)
  - Bone pain [Unknown]
  - Acne [Unknown]
  - Rash generalised [Unknown]
  - Stomatitis [Unknown]
  - Pruritus [Unknown]
  - Night sweats [Unknown]

NARRATIVE: CASE EVENT DATE: 2018
